FAERS Safety Report 15980109 (Version 1)
Quarter: 2019Q1

REPORT INFORMATION
  Report Type: Spontaneous
  Country: KR (occurrence: KR)
  Receive Date: 20190219
  Receipt Date: 20190219
  Transmission Date: 20190418
  Serious: Yes (Death, Hospitalization, Other)
  Sender: FDA-Public Use
  Company Number: KR-009507513-1902KOR005846

PATIENT
  Age: 39 Year
  Sex: Male

DRUGS (15)
  1. CURAN [Concomitant]
     Active Substance: RANITIDINE HYDROCHLORIDE
     Dosage: UNK
     Route: 048
     Dates: start: 20180606, end: 20180703
  2. KEYTRUDA [Suspect]
     Active Substance: PEMBROLIZUMAB
     Indication: ANGIOCENTRIC LYMPHOMA
     Dosage: UNK
     Dates: start: 20180710
  3. AMBROXOL ILDONG [Concomitant]
     Dosage: 15ML/2ML
     Dates: start: 20180606, end: 20180714
  4. HARTMAN CHOONGWAE [Concomitant]
     Dosage: 100 MILLILITER
     Dates: start: 20180709, end: 20180710
  5. SODIUM CHLORIDE. [Concomitant]
     Active Substance: SODIUM CHLORIDE
     Dosage: UNK
     Dates: start: 20180710
  6. PMS NYSTATIN [Concomitant]
     Dosage: 100KIU/ML
     Dates: start: 20180606, end: 20180708
  7. SODIUM CHLORIDE. [Concomitant]
     Active Substance: SODIUM CHLORIDE
     Dosage: 250 MILLILITER
     Dates: start: 20180709
  8. RESOLOR [Concomitant]
     Active Substance: PRUCALOPRIDE SUCCINATE
     Dosage: 1 MILLIGRAM
     Route: 048
     Dates: start: 20180606, end: 20180626
  9. URSA TABLETS [Concomitant]
     Dosage: 100 MILLIGRAM
     Route: 048
     Dates: start: 20180606, end: 20180703
  10. TARGIN [Concomitant]
     Active Substance: NALOXONE HYDROCHLORIDE\OXYCODONE HYDROCHLORIDE
     Dosage: 5/2.5MG
     Route: 048
     Dates: start: 20180606, end: 20180704
  11. HEXAMEDINE [Concomitant]
     Dosage: SOLUTION
     Dates: start: 20180606, end: 20180628
  12. ALMAGEL (ALMAGATE) [Concomitant]
     Dosage: UNK
     Dates: start: 20180606, end: 20180703
  13. GASMOTIN [Concomitant]
     Active Substance: MOSAPRIDE CITRATE
     Dosage: 5 MILLIGRAM
     Route: 048
     Dates: start: 20180606, end: 20180703
  14. TAZOPERAN [Concomitant]
     Dosage: 4.5 GRAM
     Dates: start: 20180712
  15. DEXTROSE. [Concomitant]
     Active Substance: DEXTROSE
     Dosage: 500 MICROGRAM
     Dates: start: 20180710

REACTIONS (3)
  - Multiple organ dysfunction syndrome [Fatal]
  - Adverse event [Unknown]
  - Product use in unapproved indication [Unknown]

NARRATIVE: CASE EVENT DATE: 201807
